FAERS Safety Report 9393232 (Version 1)
Quarter: 2013Q3

REPORT INFORMATION
  Report Type: Report from Study
  Country: US (occurrence: US)
  Receive Date: 20130710
  Receipt Date: 20130710
  Transmission Date: 20140515
  Serious: Yes (Other)
  Sender: FDA-Public Use
  Company Number: US-US-EMD SERONO, INC.-7222301

PATIENT
  Sex: Female

DRUGS (1)
  1. REBIF [Suspect]
     Indication: PRODUCT USED FOR UNKNOWN INDICATION
     Route: 058
     Dates: start: 20080702

REACTIONS (5)
  - Glaucoma [Unknown]
  - Injection site reaction [Not Recovered/Not Resolved]
  - Headache [Not Recovered/Not Resolved]
  - Injection site mass [Not Recovered/Not Resolved]
  - Injection site pain [Not Recovered/Not Resolved]
